FAERS Safety Report 8618191-5 (Version None)
Quarter: 2012Q3

REPORT INFORMATION
  Report Type: 
  Country: None (occurrence: None)
  Receive Date: 20120824
  Receipt Date: 20111222
  Transmission Date: 20120928
  Serious: No
  Sender: FDA-Public Use
  Company Number: US-ASTRAZENECA-2010SE07632

PATIENT
  Age: 71 Year
  Sex: Female

DRUGS (2)
  1. SYMBICORT [Suspect]
     Route: 055
  2. NEXIUM [Suspect]
     Route: 048

REACTIONS (5)
  - NASOPHARYNGITIS [None]
  - OESOPHAGEAL DISORDER [None]
  - MALAISE [None]
  - GASTRIC DISORDER [None]
  - DYSPHONIA [None]
